FAERS Safety Report 18822337 (Version 2)
Quarter: 2021Q1

REPORT INFORMATION
  Report Type: Spontaneous
  Country: DE (occurrence: DE)
  Receive Date: 20210202
  Receipt Date: 20210216
  Transmission Date: 20210419
  Serious: Yes (Other)
  Sender: FDA-Public Use
  Company Number: DE-PFIZER INC-2021080214

PATIENT
  Sex: Male

DRUGS (3)
  1. PREGABALIN. [Suspect]
     Active Substance: PREGABALIN
     Indication: DRUG DETOXIFICATION
     Dosage: 75 MG, 1X/DAY (TAKEN OVER A LITTLE MORE THAN SIX MONTHS)
     Route: 048
     Dates: start: 2020
  2. PREGABALIN. [Interacting]
     Active Substance: PREGABALIN
     Dosage: 200 MG (MAXIMUM AND SUBSEQUENTLY REDUCED TO DAILY DOSE OF 200MG)
     Route: 048
  3. ALPRAZOLAM. [Interacting]
     Active Substance: ALPRAZOLAM
     Dosage: UNK
     Route: 048
     Dates: start: 2020

REACTIONS (10)
  - Cognitive disorder [Unknown]
  - Body temperature decreased [Not Recovered/Not Resolved]
  - Emotional disorder [Unknown]
  - General physical health deterioration [Not Recovered/Not Resolved]
  - Hot flush [Not Recovered/Not Resolved]
  - Off label use [Unknown]
  - Chills [Not Recovered/Not Resolved]
  - Mental impairment [Not Recovered/Not Resolved]
  - Headache [Not Recovered/Not Resolved]
  - Drug interaction [Unknown]
